FAERS Safety Report 5229289-6 (Version None)
Quarter: 2007Q1

REPORT INFORMATION
  Report Type: 
  Country: None (occurrence: None)
  Receive Date: 20061201
  Receipt Date: 20060905
  Transmission Date: 20070707
  Serious: No
  Sender: FDA-Public Use
  Company Number: US200609001778

PATIENT
  Sex: Female

DRUGS (2)
  1. CYMBALTA [Suspect]
     Dosage: 30 MG
     Dates: start: 20060801
  2. PAXIL [Concomitant]

REACTIONS (2)
  - HYPERTHYROIDISM [None]
  - PALPITATIONS [None]
